FAERS Safety Report 13682371 (Version 1)
Quarter: 2017Q2

REPORT INFORMATION
  Report Type: Spontaneous
  Country: US (occurrence: US)
  Receive Date: 20170622
  Receipt Date: 20170622
  Transmission Date: 20170830
  Serious: No
  Sender: FDA-Public Use
  Company Number: None

PATIENT
  Age: 60 Year
  Sex: Male

DRUGS (1)
  1. HUMIRA [Suspect]
     Active Substance: ADALIMUMAB
     Indication: COLITIS ULCERATIVE
     Dosage: 40 MG STARTER KIT SUBCUTANEOUS
     Route: 058
     Dates: start: 20170515

REACTIONS (2)
  - Purulence [None]
  - Haematochezia [None]

NARRATIVE: CASE EVENT DATE: 20170621
